FAERS Safety Report 6364228-6 (Version None)
Quarter: 2009Q3

REPORT INFORMATION
  Report Type: 
  Country: None (occurrence: None)
  Receive Date: 20090919
  Receipt Date: 20090716
  Transmission Date: 20100115
  Serious: No
  Sender: FDA-Public Use
  Company Number: US-ABBOTT-09P-163-0586167-00

PATIENT
  Sex: Female
  Weight: 76.726 kg

DRUGS (4)
  1. HUMIRA [Suspect]
     Indication: CROHN'S DISEASE
     Route: 058
     Dates: start: 20081101
  2. PURINETOL [Concomitant]
     Indication: CROHN'S DISEASE
  3. BENTYL [Concomitant]
     Indication: ABDOMINAL PAIN UPPER
     Route: 048
  4. BENTYL [Concomitant]
     Indication: CROHN'S DISEASE

REACTIONS (1)
  - INJECTION SITE PAIN [None]
